FAERS Safety Report 9191338 (Version 1)
Quarter: 2013Q1

REPORT INFORMATION
  Report Type: Spontaneous
  Country: IN (occurrence: IN)
  Receive Date: 20130326
  Receipt Date: 20130326
  Transmission Date: 20140127
  Serious: Yes (Other)
  Sender: FDA-Public Use
  Company Number: IN-PFIZER INC-2013092595

PATIENT
  Age: 60 Year
  Sex: Female

DRUGS (1)
  1. TYGACIL [Suspect]

REACTIONS (1)
  - Dyspnoea [Unknown]
